FAERS Safety Report 5520875-2 (Version None)
Quarter: 2007Q4

REPORT INFORMATION
  Report Type: 
  Country: None (occurrence: None)
  Receive Date: 20071119
  Receipt Date: 20071113
  Transmission Date: 20080405
  Serious: Yes (Other)
  Sender: FDA-Public Use
  Company Number: B0495002A

PATIENT
  Sex: Male

DRUGS (7)
  1. LAMICTAL [Suspect]
     Indication: EPILEPSY
     Dosage: 575MG PER DAY
     Route: 048
     Dates: start: 20071103, end: 20071107
  2. LAMICTAL [Suspect]
     Dosage: 575MG PER DAY
     Route: 048
     Dates: start: 20070101
  3. TEGRETOL [Concomitant]
     Route: 065
  4. EPITOMAX [Concomitant]
     Route: 065
  5. URBANYL [Concomitant]
     Route: 065
  6. PLAVIX [Concomitant]
     Route: 065
  7. PRAXILENE [Concomitant]
     Route: 065

REACTIONS (5)
  - AGGRESSION [None]
  - DIZZINESS [None]
  - FALL [None]
  - PERSONALITY CHANGE [None]
  - PHARMACEUTICAL PRODUCT COMPLAINT [None]
